FAERS Safety Report 16337077 (Version 2)
Quarter: 2019Q3

REPORT INFORMATION
  Report Type: Report from Study
  Country: None (occurrence: US)
  Receive Date: 20190521
  Receipt Date: 20190827
  Transmission Date: 20191004
  Serious: Yes (Hospitalization, Other)
  Sender: FDA-Public Use
  Company Number: US-ABBVIE-19K-163-2785568-00

PATIENT
  Age: 56 Year
  Sex: Female
  Weight: 105.78 kg

DRUGS (1)
  1. HUMIRA [Suspect]
     Active Substance: ADALIMUMAB
     Indication: RHEUMATOID ARTHRITIS
     Route: 058

REACTIONS (6)
  - Foot fracture [Recovering/Resolving]
  - Rheumatoid arthritis [Recovering/Resolving]
  - Hypotension [Recovered/Resolved]
  - Urinary tract infection [Not Recovered/Not Resolved]
  - Joint dislocation [Unknown]
  - Fall [Unknown]

NARRATIVE: CASE EVENT DATE: 201905
